FAERS Safety Report 5114257-5 (Version None)
Quarter: 2006Q3

REPORT INFORMATION
  Report Type: 
  Country: None (occurrence: None)
  Receive Date: 20060802
  Receipt Date: 20060616
  Transmission Date: 20061208
  Serious: No
  Sender: FDA-Public Use
  Company Number: 200615474US

PATIENT
  Age: 45 Year
  Sex: Female

DRUGS (4)
  1. KETEK [Suspect]
     Indication: BRONCHITIS
     Dosage: 400 MG PO
     Route: 048
     Dates: start: 20060608
  2. KETEK [Suspect]
     Indication: PULMONARY OEDEMA
     Dosage: 400 MG PO
     Route: 048
     Dates: start: 20060608
  3. PSEUDOEPHEDRIN HYDROCHLORIDE [Concomitant]
  4. FEXIFENADINE (ALLEGRA-D) [Concomitant]

REACTIONS (4)
  - ABDOMINAL PAIN UPPER [None]
  - GAIT DISTURBANCE [None]
  - MALAISE [None]
  - VERTIGO [None]
